FAERS Safety Report 18602679 (Version 1)
Quarter: 2020Q4

REPORT INFORMATION
  Report Type: Spontaneous
  Country: US (occurrence: US)
  Receive Date: 20201210
  Receipt Date: 20201210
  Transmission Date: 20210114
  Serious: No
  Sender: FDA-Public Use
  Company Number: US-PERRIGO-20US013836

PATIENT
  Age: 29 Year
  Sex: Female
  Weight: 72.56 kg

DRUGS (3)
  1. ALBUTEROL SULFATE. [Suspect]
     Active Substance: ALBUTEROL SULFATE
     Indication: DYSPNOEA
     Dosage: 180 MCG, 4 TO 5 TIMES DAILY
     Route: 055
     Dates: start: 20200910, end: 20200912
  2. ALBUTEROL SULFATE. [Suspect]
     Active Substance: ALBUTEROL SULFATE
     Indication: ASTHMA
     Dosage: 180 MCG, 4 TO 5 TIMES DAILY
     Route: 055
     Dates: start: 202007, end: 20200909
  3. SINGULAIR [Concomitant]
     Active Substance: MONTELUKAST SODIUM
     Indication: ASTHMA

REACTIONS (2)
  - Device delivery system issue [Unknown]
  - Asthma [Recovered/Resolved]

NARRATIVE: CASE EVENT DATE: 202007
